FAERS Safety Report 7298268-X (Version None)
Quarter: 2011Q1

REPORT INFORMATION
  Report Type: 
  Country: None (occurrence: None)
  Receive Date: 20110217
  Receipt Date: 20100329
  Transmission Date: 20110831
  Serious: No
  Sender: FDA-Public Use
  Company Number: US-PFIZER INC-2010015657

PATIENT
  Sex: Male
  Weight: 99.8 kg

DRUGS (7)
  1. PLAVIX [Concomitant]
     Indication: HYPERTENSION
     Dosage: 75 MG, 1X/DAY
     Route: 048
  2. ISOSORBIDE DINITRATE [Concomitant]
     Indication: HYPERTENSION
     Dosage: 10 MG, UNK
  3. ACETYLSALICYLIC ACID [Concomitant]
     Dosage: 81 MG, 1X/DAY
     Route: 048
  4. XALATAN [Suspect]
     Indication: GLAUCOMA
     Dosage: ONE DROP BOTH EYES, DAILY
     Route: 047
     Dates: start: 20090101
  5. PLAVIX [Concomitant]
     Indication: BLOOD CHOLESTEROL INCREASED
  6. SIMVASTATIN [Concomitant]
     Indication: BLOOD CHOLESTEROL INCREASED
     Dosage: 40 MG, 1X/DAY
  7. METOPROLOL [Concomitant]
     Dosage: 25 MG, 2X/DAY

REACTIONS (1)
  - DYSGEUSIA [None]
